FAERS Safety Report 10528962 (Version 1)
Quarter: 2014Q4

REPORT INFORMATION
  Report Type: Spontaneous
  Country: FR (occurrence: FR)
  Receive Date: 20141020
  Receipt Date: 20141020
  Transmission Date: 20150528
  Serious: Yes (Hospitalization)
  Sender: FDA-Public Use
  Company Number: FR-ASTRAZENECA-2014SE77393

PATIENT
  Age: 25737 Day
  Sex: Female

DRUGS (12)
  1. KARDEGIC [Concomitant]
     Active Substance: ASPIRIN LYSINE
  2. BACTRIM [Suspect]
     Active Substance: SULFAMETHOXAZOLE\TRIMETHOPRIM
     Indication: PRODUCT USED FOR UNKNOWN INDICATION
     Dosage: 2 DF BIDAILY
     Route: 048
     Dates: start: 20140827, end: 20140919
  3. FUROSEMIDE. [Concomitant]
     Active Substance: FUROSEMIDE
     Dates: end: 20140922
  4. ZOPICLONE [Concomitant]
     Active Substance: ZOPICLONE
  5. CRESTOR [Suspect]
     Active Substance: ROSUVASTATIN CALCIUM
     Indication: HYPERCHOLESTEROLAEMIA
     Route: 048
     Dates: start: 20140903
  6. CUBICIN [Suspect]
     Active Substance: DAPTOMYCIN
     Indication: PRODUCT USED FOR UNKNOWN INDICATION
     Route: 042
     Dates: start: 20140827, end: 20140919
  7. BISOPROLOL [Concomitant]
     Active Substance: BISOPROLOL
  8. PANTOPRAZOLE [Concomitant]
     Active Substance: PANTOPRAZOLE SODIUM
  9. CANDESARTAN [Concomitant]
     Active Substance: CANDESARTAN
     Dates: end: 20140920
  10. PARACETAMOL [Concomitant]
     Active Substance: ACETAMINOPHEN
  11. LOVENOX [Concomitant]
     Active Substance: ENOXAPARIN SODIUM
  12. PLAVIX [Concomitant]
     Active Substance: CLOPIDOGREL BISULFATE

REACTIONS (3)
  - Rhabdomyolysis [Recovered/Resolved]
  - Therapy cessation [Unknown]
  - Acute kidney injury [Recovered/Resolved]

NARRATIVE: CASE EVENT DATE: 20140919
